FAERS Safety Report 18578612 (Version 1)
Quarter: 2020Q4

REPORT INFORMATION
  Report Type: Report from Study
  Country: US (occurrence: US)
  Receive Date: 20201204
  Receipt Date: 20201204
  Transmission Date: 20210114
  Serious: Yes (Other)
  Sender: FDA-Public Use
  Company Number: US-GLAXOSMITHKLINE-US2020AMR074402

PATIENT
  Sex: Female

DRUGS (8)
  1. LAMOTRIGINE. [Suspect]
     Active Substance: LAMOTRIGINE
     Indication: AFFECTIVE DISORDER
     Dosage: UNK
  2. NIRAPARIB [Suspect]
     Active Substance: NIRAPARIB
     Dosage: 1 DF, QD, 100 MG
     Route: 065
  3. DIGOXIN. [Concomitant]
     Active Substance: DIGOXIN
     Indication: PRODUCT USED FOR UNKNOWN INDICATION
     Dosage: 125 MG, QD
  4. NIRAPARIB [Suspect]
     Active Substance: NIRAPARIB
     Indication: FALLOPIAN TUBE CANCER
     Dosage: 3 DF, QD, 100 MG
     Route: 065
     Dates: start: 202001
  5. NIRAPARIB [Suspect]
     Active Substance: NIRAPARIB
     Dosage: 100 MG, QD
  6. ZOLOFT [Suspect]
     Active Substance: SERTRALINE HYDROCHLORIDE
     Indication: PRODUCT USED FOR UNKNOWN INDICATION
     Dosage: UNK
  7. NIRAPARIB [Suspect]
     Active Substance: NIRAPARIB
     Dosage: 100 MG, QD, AT LUNCHTIME WITHOUT FOOD
     Route: 065
  8. NIRAPARIB [Suspect]
     Active Substance: NIRAPARIB
     Dosage: 100 MG, DAILY
     Route: 065
     Dates: start: 20200511

REACTIONS (11)
  - Platelet count decreased [Recovered/Resolved]
  - Blood pressure diastolic increased [Recovered/Resolved]
  - Decreased activity [Unknown]
  - Thirst [Unknown]
  - Red blood cell count decreased [Not Recovered/Not Resolved]
  - Sleep terror [Unknown]
  - Ascites [Unknown]
  - Heart rate increased [Recovering/Resolving]
  - Affective disorder [Unknown]
  - Nausea [Unknown]
  - Hyperhidrosis [Recovering/Resolving]
